FAERS Safety Report 16340499 (Version 1)
Quarter: 2019Q2

REPORT INFORMATION
  Report Type: Spontaneous
  Country: US (occurrence: US)
  Receive Date: 20190522
  Receipt Date: 20190522
  Transmission Date: 20190711
  Serious: No
  Sender: FDA-Public Use
  Company Number: US-GILEAD-2019-0409241

PATIENT
  Age: 62 Year
  Sex: Female

DRUGS (8)
  1. TURMERIC [CURCUMA LONGA] [Concomitant]
  2. GREEN TEA [CAMELLIA SINENSIS] [Concomitant]
  3. EPCLUSA [Suspect]
     Active Substance: SOFOSBUVIR\VELPATASVIR
     Indication: CHRONIC HEPATITIS C
     Dosage: 1 DOSAGE FORM
     Route: 048
     Dates: start: 201902, end: 201905
  4. LEVOTHYROXINE SODIUM. [Concomitant]
     Active Substance: LEVOTHYROXINE SODIUM
  5. PREMARIN [Concomitant]
     Active Substance: ESTROGENS, CONJUGATED
  6. NARATRIPTAN HCL [Concomitant]
     Active Substance: NARATRIPTAN HYDROCHLORIDE
  7. MILK THISTLE [SILYBUM MARIANUM] [Concomitant]
  8. ALEVE [Concomitant]
     Active Substance: NAPROXEN SODIUM

REACTIONS (3)
  - Headache [Unknown]
  - Memory impairment [Unknown]
  - Product dose omission [Recovered/Resolved]

NARRATIVE: CASE EVENT DATE: 201902
